FAERS Safety Report 6612730-1 (Version None)
Quarter: 2010Q1

REPORT INFORMATION
  Report Type: 
  Country: None (occurrence: None)
  Receive Date: 20100223
  Receipt Date: 20100209
  Transmission Date: 20100710
  Serious: Yes (Death)
  Sender: FDA-Public Use
  Company Number: 1000011943

PATIENT
  Age: 82 Year
  Sex: Female

DRUGS (10)
  1. CITALOPRAM HYDROBROMIDE [Suspect]
     Indication: DEPRESSION
     Dosage: 20 MG (20 MG, 1 IN 1 D), ORAL
     Route: 048
     Dates: end: 20100114
  2. PLAVIX [Suspect]
     Indication: ATRIAL FLUTTER
     Dosage: 1 DOSAGE FORMS (1 DOSAGE FORMS, 1 IN 1 D), ORAL
     Route: 048
     Dates: end: 20100106
  3. ASPEGIC 1000 [Suspect]
     Indication: ATRIAL FLUTTER
     Dosage: 1 DOSAGE FORMS (1 DOSAGE FORMS, 1 IN 1 D), ORAL
     Route: 048
     Dates: end: 20100106
  4. KARDEGIC            (75 MILLIGRAM) [Suspect]
     Indication: ATRIAL FLUTTER
     Dosage: 1 DOSAGE FORMS (1 DOSAGE FORMS, 1 IN 1 D), ORAL
     Route: 048
     Dates: start: 20100108, end: 20100114
  5. LOVENOX [Suspect]
     Indication: ATRIAL FLUTTER
     Dosage: 0.4 ML (0.4 ML, 1 IN 1 D), ORAL
     Route: 048
     Dates: start: 20100108, end: 20100114
  6. LASILIX [Concomitant]
  7. ISOPTIN [Concomitant]
  8. DIGOXIN [Concomitant]
  9. DIFFU K [Concomitant]
  10. TRANXENE [Concomitant]

REACTIONS (7)
  - FALL [None]
  - HAEMARTHROSIS [None]
  - HAEMATURIA [None]
  - HAEMORRHAGIC ANAEMIA [None]
  - JOINT INJURY [None]
  - RENAL FAILURE [None]
  - TRAUMATIC HAEMATOMA [None]
